FAERS Safety Report 5964559-5 (Version None)
Quarter: 2008Q4

REPORT INFORMATION
  Report Type: 
  Country: None (occurrence: None)
  Receive Date: 20081119
  Receipt Date: 20081104
  Transmission Date: 20090506
  Serious: Yes (Death)
  Sender: FDA-Public Use
  Company Number: 2008S1019769

PATIENT
  Age: 61 Year
  Sex: Female

DRUGS (6)
  1. NIMESULIDE (NIMESULIDE) [Suspect]
  2. FLUOXETINE [Suspect]
  3. ASPIRIN [Suspect]
  4. VALSARTAN AND HYDROCHLOROTHIAZIDE [Suspect]
  5. NEBIVOLOL HCL [Suspect]
  6. LEVOTHYROXINE SODIUM [Suspect]

REACTIONS (3)
  - ACUTE HEPATIC FAILURE [None]
  - HEPATOTOXICITY [None]
  - MULTI-ORGAN FAILURE [None]
